FAERS Safety Report 14105202 (Version 1)
Quarter: 2017Q4

REPORT INFORMATION
  Report Type: Spontaneous
  Country: AR (occurrence: AR)
  Receive Date: 20171018
  Receipt Date: 20171018
  Transmission Date: 20180321
  Serious: Yes (Hospitalization)
  Sender: FDA-Public Use
  Company Number: AR-BAYER-2017-194977

PATIENT
  Age: 66 Year
  Sex: Female

DRUGS (4)
  1. CLONAGIN [Concomitant]
     Dosage: UNK
  2. NAPROXEN BERK [Concomitant]
     Dosage: UNK
  3. MIOPROPAN T [Concomitant]
     Dosage: UNK
  4. ASPIRINETAS 100 MG [Suspect]
     Active Substance: ASPIRIN
     Dosage: 1 DF, QD
     Dates: start: 2011

REACTIONS (5)
  - Emphysema [Recovered/Resolved]
  - Capillary fragility [Not Recovered/Not Resolved]
  - Chronic obstructive pulmonary disease [Recovered/Resolved]
  - Petechiae [Not Recovered/Not Resolved]
  - Underdose [Unknown]

NARRATIVE: CASE EVENT DATE: 2014
